FAERS Safety Report 25230074 (Version 2)
Quarter: 2025Q3

REPORT INFORMATION
  Report Type: Report from Study
  Country: ZA (occurrence: ZA)
  Receive Date: 20250423
  Receipt Date: 20250810
  Transmission Date: 20251020
  Serious: Yes (Hospitalization)
  Sender: ALEXION PHARMACEUTICALS
  Company Number: ZA-AstraZeneca-CH-00850487A

PATIENT
  Age: 61 Year
  Sex: Male

DRUGS (5)
  1. BUDESONIDE\FORMOTEROL [Suspect]
     Active Substance: BUDESONIDE\FORMOTEROL
     Indication: Asthma
  2. AMLODIPINE BESYLATE [Concomitant]
     Active Substance: AMLODIPINE BESYLATE
     Indication: Hypertension
  3. Lipogen [Concomitant]
     Indication: Blood cholesterol
  4. ALLOPURINOL [Concomitant]
     Active Substance: ALLOPURINOL
  5. BISOPROLOL [Concomitant]
     Active Substance: BISOPROLOL
     Indication: Hypertension

REACTIONS (3)
  - Musculoskeletal pain [Recovering/Resolving]
  - Nerve compression [Recovering/Resolving]
  - Gait disturbance [Recovering/Resolving]
